FAERS Safety Report 14757121 (Version 1)
Quarter: 2018Q2

REPORT INFORMATION
  Report Type: Report from Study
  Country: BR (occurrence: BR)
  Receive Date: 20180413
  Receipt Date: 20180413
  Transmission Date: 20180711
  Serious: Yes (Death, Other)
  Sender: FDA-Public Use
  Company Number: PHHY2018BR024899

PATIENT
  Sex: Female

DRUGS (1)
  1. VOTRIENT [Suspect]
     Active Substance: PAZOPANIB HYDROCHLORIDE
     Indication: METASTATIC RENAL CELL CARCINOMA
     Dosage: 800 MG, QD (ONCE DAILY)
     Route: 048
     Dates: start: 20171031

REACTIONS (9)
  - Decreased appetite [Not Recovered/Not Resolved]
  - Death [Fatal]
  - Pain in extremity [Unknown]
  - Nausea [Not Recovered/Not Resolved]
  - Movement disorder [Unknown]
  - Weight decreased [Not Recovered/Not Resolved]
  - Bone disorder [Unknown]
  - Vomiting [Not Recovered/Not Resolved]
  - Cachexia [Unknown]
